FAERS Safety Report 13934567 (Version 1)
Quarter: 2017Q3

REPORT INFORMATION
  Report Type: Spontaneous
  Country: US (occurrence: US)
  Receive Date: 20170905
  Receipt Date: 20170905
  Transmission Date: 20171127
  Serious: Yes (Other)
  Sender: FDA-Public Use
  Company Number: US-TEVA-693647USA

PATIENT
  Sex: Female

DRUGS (1)
  1. VELIVET [Suspect]
     Active Substance: DESOGESTREL\ETHINYL ESTRADIOL
     Route: 065
     Dates: start: 201608, end: 2016

REACTIONS (2)
  - Throat tightness [Unknown]
  - Pharyngeal oedema [Unknown]

NARRATIVE: CASE EVENT DATE: 201608
